FAERS Safety Report 13979141 (Version 1)
Quarter: 2017Q3

REPORT INFORMATION
  Report Type: Spontaneous
  Country: US (occurrence: US)
  Receive Date: 20170914
  Receipt Date: 20170914
  Transmission Date: 20171128
  Serious: No
  Sender: FDA-Public Use
  Company Number: US-ASTELLAS-2017US008980

PATIENT
  Age: 83 Year
  Sex: Male

DRUGS (3)
  1. XTANDI [Suspect]
     Active Substance: ENZALUTAMIDE
     Indication: PROSTATE CANCER METASTATIC
     Dosage: 80 MG (2 PILLS), ONCE DAILY
     Route: 048
     Dates: start: 20170207
  2. XTANDI [Suspect]
     Active Substance: ENZALUTAMIDE
     Dosage: 160 MG (FOUR 40 MG PILLS), ONCE DAILY
     Route: 048
     Dates: start: 20170214
  3. LUPRON [Concomitant]
     Active Substance: LEUPROLIDE ACETATE
     Indication: PRODUCT USED FOR UNKNOWN INDICATION
     Dosage: UNK UNK, UNKNOWN FREQ.
     Route: 065

REACTIONS (11)
  - Reflux gastritis [Recovered/Resolved]
  - Hot flush [Not Recovered/Not Resolved]
  - Sciatica [Recovered/Resolved]
  - Hyperhidrosis [Unknown]
  - Dyspepsia [Recovered/Resolved]
  - Nausea [Not Recovered/Not Resolved]
  - Underdose [Unknown]
  - Panic disorder [Not Recovered/Not Resolved]
  - Asthenia [Unknown]
  - Fatigue [Unknown]
  - Back pain [Not Recovered/Not Resolved]

NARRATIVE: CASE EVENT DATE: 201702
